FAERS Safety Report 14549489 (Version 2)
Quarter: 2018Q2

REPORT INFORMATION
  Report Type: Spontaneous
  Country: US (occurrence: US)
  Receive Date: 20180219
  Receipt Date: 20180411
  Transmission Date: 20180711
  Serious: No
  Sender: FDA-Public Use
  Company Number: US-TORRENT-00003507

PATIENT
  Age: 12 Year
  Sex: Male

DRUGS (3)
  1. GUANFACINE. [Concomitant]
     Active Substance: GUANFACINE
     Indication: ATTENTION DEFICIT/HYPERACTIVITY DISORDER
     Dates: start: 201707
  2. ARIPIPRAZOLE TABLET [Concomitant]
     Active Substance: ARIPIPRAZOLE
     Indication: PRODUCT USED FOR UNKNOWN INDICATION
     Dosage: 245
  3. ARIPIPRAZOLE. [Suspect]
     Active Substance: ARIPIPRAZOLE
     Indication: AFFECTIVE DISORDER
     Dosage: ONE TABLET TWICE A DAY
     Route: 048
     Dates: start: 20170914, end: 20171009

REACTIONS (5)
  - Aggression [Recovered/Resolved]
  - Product substitution issue [Unknown]
  - Anger [Recovered/Resolved]
  - Depression [Recovered/Resolved]
  - Off label use [Unknown]

NARRATIVE: CASE EVENT DATE: 20170914
